FAERS Safety Report 26073025 (Version 2)
Quarter: 2025Q4

REPORT INFORMATION
  Report Type: Spontaneous
  Country: TW (occurrence: TW)
  Receive Date: 20251121
  Receipt Date: 20251215
  Transmission Date: 20260118
  Serious: Yes (Life-Threatening)
  Sender: JOHNSON AND JOHNSON
  Company Number: TW-JNJFOC-20251163911

PATIENT
  Age: 63 Year
  Sex: Female
  Weight: 52.3 kg

DRUGS (2)
  1. SPRAVATO [Suspect]
     Active Substance: ESKETAMINE
     Indication: Depression
     Route: 045
     Dates: start: 20251117, end: 20251117
  2. SPRAVATO [Suspect]
     Active Substance: ESKETAMINE
     Indication: Suicidal ideation

REACTIONS (3)
  - Hypertensive crisis [Recovered/Resolved]
  - Sedation [Recovered/Resolved]
  - Dissociative disorder [Recovered/Resolved]

NARRATIVE: CASE EVENT DATE: 20251117
